FAERS Safety Report 4477102-7 (Version None)
Quarter: 2004Q4

REPORT INFORMATION
  Report Type: 
  Country: None (occurrence: None)
  Receive Date: 20041018
  Receipt Date: 20040813
  Transmission Date: 20050328
  Serious: Yes (Hospitalization)
  Sender: FDA-Public Use
  Company Number: 200413053FR

PATIENT
  Age: 49 Year
  Sex: Female
  Weight: 62 kg

DRUGS (4)
  1. LOVENOX [Suspect]
     Route: 058
     Dates: start: 20040706, end: 20040721
  2. OFLOCET [Concomitant]
     Indication: INFECTION
     Route: 042
     Dates: start: 20040712, end: 20040716
  3. TAZOCILLINE [Concomitant]
     Route: 042
     Dates: start: 20040712, end: 20040720
  4. VANCOMYCIN [Concomitant]
     Route: 042
     Dates: start: 20040712, end: 20040716

REACTIONS (12)
  - ACTIVATED PARTIAL THROMBOPLASTIN TIME PROLONGED [None]
  - ANTINUCLEAR ANTIBODY POSITIVE [None]
  - C-REACTIVE PROTEIN INCREASED [None]
  - COAGULATION FACTOR XII LEVEL DECREASED [None]
  - DRUG INTERACTION POTENTIATION [None]
  - HAEMOGLOBIN DECREASED [None]
  - PELVIC INFECTION [None]
  - PEPTOSTREPTOCOCCUS INFECTION [None]
  - POSTOPERATIVE INFECTION [None]
  - PROTHROMBIN TIME SHORTENED [None]
  - SURGICAL PROCEDURE REPEATED [None]
  - THROMBOCYTHAEMIA [None]
